FAERS Safety Report 17149376 (Version 1)
Quarter: 2019Q4

REPORT INFORMATION
  Report Type: Spontaneous
  Country: US (occurrence: US)
  Receive Date: 20191213
  Receipt Date: 20191213
  Transmission Date: 20200122
  Serious: No
  Sender: FDA-Public Use
  Company Number: US-APOTEX-2019AP025975

PATIENT
  Sex: Female

DRUGS (1)
  1. NICOTINE. [Suspect]
     Active Substance: NICOTINE
     Indication: SMOKING CESSATION THERAPY
     Dosage: UNK
     Route: 062

REACTIONS (5)
  - Application site hypoaesthesia [Recovered/Resolved]
  - Tremor [Recovered/Resolved]
  - Application site erythema [Recovered/Resolved]
  - Feeling abnormal [Recovered/Resolved]
  - Application site reaction [Not Recovered/Not Resolved]
